FAERS Safety Report 5000861-1 (Version None)
Quarter: 2006Q2

REPORT INFORMATION
  Report Type: 
  Country: None (occurrence: None)
  Receive Date: 20060512
  Receipt Date: 20060104
  Transmission Date: 20061013
  Serious: Yes (Hospitalization, Other)
  Sender: FDA-Public Use
  Company Number: US-MERCK-0601USA00587

PATIENT
  Age: 65 Year
  Sex: Female
  Weight: 102 kg

DRUGS (19)
  1. VIOXX [Suspect]
     Indication: KNEE ARTHROPLASTY
     Route: 048
     Dates: start: 20010517, end: 20040909
  2. VIOXX [Suspect]
     Indication: OSTEOARTHRITIS
     Route: 048
     Dates: start: 20010517, end: 20040909
  3. ATENOLOL [Concomitant]
     Indication: HYPERTENSION
     Route: 065
  4. DILANTIN [Concomitant]
     Indication: CONVULSION
     Route: 065
  5. PROPOXYPHENE HYDROCHLORIDE [Concomitant]
     Indication: PAIN
     Route: 065
  6. [THERAPY UNSPECIFIED] [Concomitant]
     Route: 065
  7. FUROSEMIDE [Concomitant]
     Route: 065
  8. KETOPROFEN [Concomitant]
     Indication: PAIN
     Route: 065
  9. TRIAMTERENE [Concomitant]
     Indication: FLUID RETENTION
     Route: 065
  10. MEVACOR [Concomitant]
     Indication: BLOOD CHOLESTEROL INCREASED
     Route: 065
  11. TEMAZEPAM [Concomitant]
     Indication: INSOMNIA
     Route: 065
  12. PREMARIN [Concomitant]
     Indication: HORMONE LEVEL ABNORMAL
     Route: 065
  13. PROTONIX [Concomitant]
     Indication: GASTRIC DISORDER
     Route: 065
  14. ACIPHEX [Concomitant]
     Indication: GASTRIC DISORDER
     Route: 065
  15. AVELOX [Concomitant]
     Indication: BACTERIAL INFECTION
     Route: 065
  16. AMITRIPTYLINE HYDROCHLORIDE [Concomitant]
     Indication: PAIN
     Route: 065
  17. CYCLOBENZAPRINE HYDROCHLORIDE [Concomitant]
     Indication: PAIN
     Route: 065
  18. CIMETIDINE [Concomitant]
     Indication: GASTRIC DISORDER
     Route: 065
  19. RANITIDINE [Concomitant]
     Route: 065

REACTIONS (10)
  - ABDOMINAL PAIN UPPER [None]
  - DEEP VEIN THROMBOSIS [None]
  - DYSPEPSIA [None]
  - HAEMATOCHEZIA [None]
  - HAEMORRHOIDS [None]
  - PNEUMONIA [None]
  - POLYCYTHAEMIA [None]
  - PULMONARY EMBOLISM [None]
  - RENAL FAILURE [None]
  - THROMBOSIS [None]
